FAERS Safety Report 6097938-9 (Version None)
Quarter: 2009Q1

REPORT INFORMATION
  Report Type: 
  Country: None (occurrence: None)
  Receive Date: 20090227
  Receipt Date: 20090223
  Transmission Date: 20090719
  Serious: Yes (Hospitalization)
  Sender: FDA-Public Use
  Company Number: US-ELI_LILLY_AND_COMPANY-US200902006625

PATIENT
  Sex: Female

DRUGS (2)
  1. HUMALOG [Suspect]
     Indication: DIABETES MELLITUS
     Dosage: UNK, UNK
     Dates: end: 20090201
  2. FORTEO [Suspect]

REACTIONS (3)
  - ARTERIAL BYPASS OPERATION [None]
  - ASTHENIA [None]
  - VISUAL ACUITY REDUCED [None]
